FAERS Safety Report 6195334-7 (Version None)
Quarter: 2009Q2

REPORT INFORMATION
  Report Type: 
  Country: None (occurrence: None)
  Receive Date: 20090515
  Receipt Date: 20090428
  Transmission Date: 20091009
  Serious: Yes (Other)
  Sender: FDA-Public Use
  Company Number: 09-ADE-SU-0011-ACT

PATIENT
  Age: 7 Year
  Sex: Female

DRUGS (1)
  1. H.P. ACTHAR GEL I [Suspect]
     Indication: INFANTILE SPASMS

REACTIONS (1)
  - LEUKAEMIA [None]
